FAERS Safety Report 5101409-3 (Version None)
Quarter: 2006Q3

REPORT INFORMATION
  Report Type: 
  Country: None (occurrence: None)
  Receive Date: 20060911
  Receipt Date: 20060905
  Transmission Date: 20061208
  Serious: Yes (Other)
  Sender: FDA-Public Use
  Company Number: AR-GLAXOSMITHKLINE-A0619581A

PATIENT
  Age: 19 Year
  Sex: Male

DRUGS (3)
  1. LAMICTAL [Suspect]
     Indication: BIPOLAR DISORDER
     Dosage: 225MG PER DAY
     Route: 048
     Dates: start: 20050201
  2. RITALIN [Concomitant]
  3. POTASSIUM CITRATE [Concomitant]

REACTIONS (4)
  - ABDOMINAL PAIN [None]
  - JAUNDICE [None]
  - NAUSEA [None]
  - PANIC ATTACK [None]
